FAERS Safety Report 16830194 (Version 1)
Quarter: 2019Q3

REPORT INFORMATION
  Report Type: Spontaneous
  Country: GT (occurrence: GT)
  Receive Date: 20190919
  Receipt Date: 20190919
  Transmission Date: 20191005
  Serious: Yes (Hospitalization)
  Sender: FDA-Public Use
  Company Number: PHHY2019GT216146

PATIENT

DRUGS (2)
  1. SCAPHO [Suspect]
     Active Substance: SECUKINUMAB
     Indication: PSORIASIS
     Dosage: 300 MG, UNK
     Route: 065
  2. SCAPHO [Suspect]
     Active Substance: SECUKINUMAB
     Dosage: UNK
     Route: 065
     Dates: start: 20190909

REACTIONS (6)
  - Dehydration [Unknown]
  - Pyrexia [Unknown]
  - Gastroenteritis [Unknown]
  - Hypotension [Unknown]
  - Psoriasis [Unknown]
  - Eosinophilia [Unknown]
